FAERS Safety Report 15703203 (Version 1)
Quarter: 2018Q4

REPORT INFORMATION
  Report Type: Spontaneous
  Country: US (occurrence: US)
  Receive Date: 20181209
  Receipt Date: 20181209
  Transmission Date: 20190205
  Serious: Yes (Life-Threatening, Other)
  Sender: FDA-Public Use
  Company Number: None

PATIENT
  Age: 39 Year
  Sex: Female
  Weight: 107.1 kg

DRUGS (3)
  1. CVS HAIR SKIN AND NAILS [Concomitant]
  2. B-12 VITAMINS [Concomitant]
  3. BELVIQ [Suspect]
     Active Substance: LORCASERIN HYDROCHLORIDE
     Indication: WEIGHT CONTROL
     Dosage: ?          QUANTITY:60 TABLET(S);?
     Route: 048
     Dates: start: 20181127, end: 20181205

REACTIONS (5)
  - Pain [None]
  - Dyspnoea [None]
  - Breast swelling [None]
  - Headache [None]
  - Chest discomfort [None]

NARRATIVE: CASE EVENT DATE: 20181127
